FAERS Safety Report 7332931-7 (Version None)
Quarter: 2011Q1

REPORT INFORMATION
  Report Type: 
  Country: None (occurrence: None)
  Receive Date: 20110304
  Receipt Date: 20110223
  Transmission Date: 20110831
  Serious: Yes (Other)
  Sender: FDA-Public Use
  Company Number: CHPA2011US03387

PATIENT

DRUGS (2)
  1. PREVACID [Suspect]
     Dosage: UNK, UNK
     Route: 065
  2. PREVACID 24 HR [Suspect]
     Dosage: UNK, UNK
     Route: 065

REACTIONS (3)
  - DRUG ADMINISTRATION ERROR [None]
  - OVERDOSE [None]
  - PERITONITIS [None]
